FAERS Safety Report 14688131 (Version 1)
Quarter: 2018Q1

REPORT INFORMATION
  Report Type: Spontaneous
  Country: US (occurrence: US)
  Receive Date: 20180328
  Receipt Date: 20180328
  Transmission Date: 20180509
  Serious: No
  Sender: FDA-Public Use
  Company Number: US-PFIZER INC-2018126483

PATIENT

DRUGS (2)
  1. PROVIGIL [Interacting]
     Active Substance: MODAFINIL
     Dosage: 100 MG, DAILY
  2. PREMPRO [Suspect]
     Active Substance: ESTROGENS, CONJUGATED\MEDROXYPROGESTERONE ACETATE
     Dosage: UNK [45/1.5 ]

REACTIONS (3)
  - Headache [Not Recovered/Not Resolved]
  - Drug interaction [Unknown]
  - Migraine [Recovered/Resolved]
